FAERS Safety Report 9766787 (Version 2)
Quarter: 2015Q3

REPORT INFORMATION
  Report Type: Spontaneous
  Country: US (occurrence: US)
  Receive Date: 20131217
  Receipt Date: 20150818
  Transmission Date: 20151125
  Serious: No
  Sender: FDA-Public Use
  Company Number: US-BIOGENIDEC-2013BI118624

PATIENT
  Age: 60 Year
  Sex: Female

DRUGS (1)
  1. TECFIDERA [Suspect]
     Active Substance: DIMETHYL FUMARATE
     Indication: MULTIPLE SCLEROSIS
     Dates: start: 20131001

REACTIONS (7)
  - Diarrhoea [Not Recovered/Not Resolved]
  - Hot flush [Not Recovered/Not Resolved]
  - Pruritus [Not Recovered/Not Resolved]
  - Vomiting [Not Recovered/Not Resolved]
  - Vision blurred [Not Recovered/Not Resolved]
  - Abdominal pain upper [Not Recovered/Not Resolved]
  - Nausea [Unknown]

NARRATIVE: CASE EVENT DATE: 20131023
